FAERS Safety Report 23375115 (Version 3)
Quarter: 2025Q3

REPORT INFORMATION
  Report Type: Spontaneous
  Country: US (occurrence: US)
  Receive Date: 20240106
  Receipt Date: 20250818
  Transmission Date: 20251021
  Serious: Yes (Life-Threatening, Other)
  Sender: AUROBINDO
  Company Number: US-AUROBINDO-AUR-APL-2023-081590

PATIENT
  Age: 72 Year
  Sex: Female

DRUGS (1)
  1. FLECAINIDE [Suspect]
     Active Substance: FLECAINIDE
     Indication: Ventricular extrasystoles
     Dosage: 100 MILLIGRAM, TWO TIMES A DAY
     Route: 065

REACTIONS (5)
  - Electrocardiogram QRS complex prolonged [Recovering/Resolving]
  - Toxicity to various agents [Unknown]
  - Hypotension [Recovering/Resolving]
  - Rhythm idioventricular [Recovering/Resolving]
  - Device capturing issue [Recovering/Resolving]
